FAERS Safety Report 5418295-4 (Version None)
Quarter: 2007Q3

REPORT INFORMATION
  Report Type: 
  Country: None (occurrence: None)
  Receive Date: 20070817
  Receipt Date: 20070808
  Transmission Date: 20080115
  Serious: Yes (Other)
  Sender: FDA-Public Use
  Company Number: BR-MERCK-0708BRA00045

PATIENT
  Age: 41 Year
  Sex: Female

DRUGS (1)
  1. ALDOMET [Suspect]
     Route: 065
     Dates: start: 20060801

REACTIONS (1)
  - ABORTION SPONTANEOUS [None]
